FAERS Safety Report 10086232 (Version 1)
Quarter: 2014Q2

REPORT INFORMATION
  Report Type: Spontaneous
  Country: US (occurrence: None)
  Receive Date: 20140417
  Receipt Date: 20140417
  Transmission Date: 20141212
  Serious: Yes (Other)
  Sender: FDA-Public Use
  Company Number: None

PATIENT
  Age: 70 Year
  Sex: Female
  Weight: 53.98 kg

DRUGS (2)
  1. DEXILANT [Suspect]
     Indication: ABDOMINAL PAIN
     Dosage: TAKEN OFF AND ON.
     Route: 048
  2. DEXILANT [Suspect]
     Indication: DIARRHOEA
     Dosage: TAKEN OFF AND ON.
     Route: 048

REACTIONS (2)
  - Pruritus genital [None]
  - Genital rash [None]
